FAERS Safety Report 4492055-3 (Version None)
Quarter: 2004Q4

REPORT INFORMATION
  Report Type: 
  Country: None (occurrence: None)
  Receive Date: 20041101
  Receipt Date: 20040727
  Transmission Date: 20050328
  Serious: Yes (Other)
  Sender: FDA-Public Use
  Company Number: 2004-DE-05599UP

PATIENT
  Sex: Female

DRUGS (1)
  1. MIRAPEX [Suspect]
     Indication: PARKINSON'S DISEASE
     Dosage: 0.25 MG (0.25 MG, 1 IN 1 D)PO
     Route: 048
     Dates: start: 20040713, end: 20040716

REACTIONS (3)
  - DIZZINESS [None]
  - MOTOR DYSFUNCTION [None]
  - SOMNOLENCE [None]
